FAERS Safety Report 15969935 (Version 1)
Quarter: 2019Q1

REPORT INFORMATION
  Report Type: Report from Study
  Country: US (occurrence: US)
  Receive Date: 20190215
  Receipt Date: 20190215
  Transmission Date: 20190418
  Serious: Yes (Congenital Anomaly)
  Sender: FDA-Public Use
  Company Number: US-AMAG PHARMACEUTICALS, INC.-AMAG201801537

PATIENT

DRUGS (1)
  1. MAKENA [Suspect]
     Active Substance: HYDROXYPROGESTERONE CAPROATE
     Indication: FOETAL EXPOSURE DURING PREGNANCY
     Dosage: 250 MG/ML, WEEKLY
     Route: 030
     Dates: start: 20180222

REACTIONS (1)
  - Trisomy 13 [Not Recovered/Not Resolved]

NARRATIVE: CASE EVENT DATE: 20180326
